FAERS Safety Report 4421081-5 (Version None)
Quarter: 2004Q3

REPORT INFORMATION
  Report Type: 
  Country: None (occurrence: None)
  Receive Date: 20040707
  Receipt Date: 20040427
  Transmission Date: 20050211
  Serious: Yes (Other)
  Sender: FDA-Public Use
  Company Number: 365919

PATIENT
  Age: 58 Year
  Sex: Male
  Weight: 49.9 kg

DRUGS (5)
  1. FUZEON [Suspect]
     Dosage: 90 MG/ML 2 PER DAY
     Dates: start: 20040315
  2. VIDEX [Concomitant]
  3. VIREAD [Concomitant]
  4. PRILOSEC [Concomitant]
  5. DIFLUCAN [Concomitant]

REACTIONS (1)
  - FLANK PAIN [None]
